FAERS Safety Report 6717074-5 (Version None)
Quarter: 2010Q2

REPORT INFORMATION
  Report Type: 
  Country: None (occurrence: None)
  Receive Date: 20100505
  Receipt Date: 20100420
  Transmission Date: 20101027
  Serious: Yes (Death, Hospitalization)
  Sender: FDA-Public Use
  Company Number: 2010001025

PATIENT
  Age: 81 Year
  Sex: Male

DRUGS (9)
  1. TARCEVA [Suspect]
     Indication: LUNG ADENOCARCINOMA
     Dosage: (150 MG, QD), ORAL
     Route: 048
     Dates: start: 20090604, end: 20100315
  2. VERAPAMIL [Concomitant]
  3. ZOMETA [Concomitant]
  4. SPIRIVA [Concomitant]
  5. ASPIRIN [Concomitant]
  6. XOPENEX [Concomitant]
  7. PROSCAR [Concomitant]
  8. MULTIVITAMIN [Concomitant]
  9. CALCIUM (CALCIUM) [Concomitant]

REACTIONS (6)
  - ACUTE RESPIRATORY FAILURE [None]
  - ALANINE AMINOTRANSFERASE INCREASED [None]
  - ASPARTATE AMINOTRANSFERASE INCREASED [None]
  - CHRONIC OBSTRUCTIVE PULMONARY DISEASE [None]
  - INTERSTITIAL LUNG DISEASE [None]
  - PULMONARY EMBOLISM [None]
